FAERS Safety Report 14544954 (Version 1)
Quarter: 2018Q1

REPORT INFORMATION
  Report Type: Spontaneous
  Country: US (occurrence: US)
  Receive Date: 20180216
  Receipt Date: 20180216
  Transmission Date: 20180509
  Serious: Yes (Hospitalization)
  Sender: FDA-Public Use
  Company Number: None

PATIENT
  Age: 47 Year
  Sex: Male
  Weight: 89.1 kg

DRUGS (1)
  1. VARENICLINE [Suspect]
     Active Substance: VARENICLINE
     Indication: ALCOHOLISM
     Route: 048
     Dates: start: 20180129, end: 20180201

REACTIONS (1)
  - Seizure [None]

NARRATIVE: CASE EVENT DATE: 20180201
